FAERS Safety Report 4824488-7 (Version None)
Quarter: 2005Q4

REPORT INFORMATION
  Report Type: 
  Country: None (occurrence: None)
  Receive Date: 20051108
  Receipt Date: 20051021
  Transmission Date: 20060501
  Serious: Yes (Other)
  Sender: FDA-Public Use
  Company Number: GBS051018840

PATIENT
  Sex: Female

DRUGS (2)
  1. GEMZAR [Suspect]
  2. CARBOPLATIN [Concomitant]

REACTIONS (2)
  - MYOCARDIAL INFARCTION [None]
  - NEUTROPENIC SEPSIS [None]
